FAERS Safety Report 11114161 (Version 1)
Quarter: 2015Q2

REPORT INFORMATION
  Report Type: Report from Study
  Country: VE (occurrence: VE)
  Receive Date: 20150514
  Receipt Date: 20150514
  Transmission Date: 20150821
  Serious: Yes (Other)
  Sender: FDA-Public Use
  Company Number: PHHY2015VE057105

PATIENT
  Age: 38 Year
  Sex: Male
  Weight: 20 kg

DRUGS (1)
  1. TASIGNA [Suspect]
     Active Substance: NILOTINIB
     Indication: CHRONIC MYELOID LEUKAEMIA
     Dosage: 800 MG, QD
     Route: 048
     Dates: start: 20120409

REACTIONS (10)
  - Skin discolouration [Recovering/Resolving]
  - Gastrointestinal disorder [Unknown]
  - Drug intolerance [Unknown]
  - Leprosy [Recovering/Resolving]
  - Mass [Recovering/Resolving]
  - Food interaction [Unknown]
  - Burning sensation [Recovering/Resolving]
  - Rash generalised [Unknown]
  - Hypersensitivity [Recovering/Resolving]
  - Contusion [Unknown]

NARRATIVE: CASE EVENT DATE: 20150421
